FAERS Safety Report 4425666-1 (Version None)
Quarter: 2004Q3

REPORT INFORMATION
  Report Type: 
  Country: None (occurrence: None)
  Receive Date: 20040810
  Receipt Date: 20040726
  Transmission Date: 20050211
  Serious: Yes (Hospitalization)
  Sender: FDA-Public Use
  Company Number: 196269

PATIENT
  Age: 57 Year
  Sex: Female
  Weight: 80.7403 kg

DRUGS (10)
  1. AVONEX [Suspect]
     Indication: MULTIPLE SCLEROSIS
     Dates: start: 19980101
  2. ADVAIR DISKUS 100/50 [Concomitant]
  3. METHOCARBAMOL [Concomitant]
  4. MECLIZINE [Concomitant]
  5. CLARINEX [Concomitant]
  6. FLONASE [Concomitant]
  7. CALCIUM [Concomitant]
  8. VITAMIN D [Concomitant]
  9. CENTRUM [Concomitant]
  10. MOTRIN [Concomitant]

REACTIONS (13)
  - ASPERGILLOMA [None]
  - BRONCHIAL OBSTRUCTION [None]
  - CHEST PAIN [None]
  - DYSPNOEA [None]
  - HYPOVOLAEMIA [None]
  - IMMUNOSUPPRESSION [None]
  - INFLAMMATION [None]
  - LUNG NEOPLASM [None]
  - MITRAL VALVE INCOMPETENCE [None]
  - POST PROCEDURAL COMPLICATION [None]
  - PULMONARY MASS [None]
  - TUMOUR NECROSIS [None]
  - VENTRICULAR DYSFUNCTION [None]
